FAERS Safety Report 16025381 (Version 1)
Quarter: 2019Q1

REPORT INFORMATION
  Report Type: Spontaneous
  Country: US (occurrence: US)
  Receive Date: 20190301
  Receipt Date: 20190301
  Transmission Date: 20190418
  Serious: No
  Sender: FDA-Public Use
  Company Number: US-KVK-TECH, INC-2063418

PATIENT
  Age: 49 Year
  Sex: Female

DRUGS (2)
  1. SUN PHARMACEUTICALS OXYCODONE [Suspect]
     Active Substance: OXYCODONE
     Indication: NERVE COMPRESSION
     Route: 065
  2. MORPHINE SULFATE. [Concomitant]
     Active Substance: MORPHINE SULFATE
     Route: 065

REACTIONS (2)
  - Drug ineffective [Recovered/Resolved]
  - Headache [Recovered/Resolved]
